FAERS Safety Report 4626905-4 (Version None)
Quarter: 2005Q2

REPORT INFORMATION
  Report Type: 
  Country: None (occurrence: None)
  Receive Date: 20050405
  Receipt Date: 20050303
  Transmission Date: 20051028
  Serious: Yes (Hospitalization)
  Sender: FDA-Public Use
  Company Number: DE-MERCK-0503DEU00043

PATIENT
  Age: 55 Year
  Sex: Male

DRUGS (2)
  1. VIOXX [Suspect]
     Indication: SPINAL COLUMN STENOSIS
     Route: 048
     Dates: start: 20020418
  2. VIOXX [Suspect]
     Indication: BACK PAIN
     Route: 048
     Dates: start: 20020418

REACTIONS (5)
  - ARTERIOSCLEROSIS [None]
  - CEREBRAL INFARCTION [None]
  - HYPERTENSION [None]
  - MACROANGIOPATHY [None]
  - REFUSAL OF TREATMENT BY PATIENT [None]
